FAERS Safety Report 4854582-6 (Version None)
Quarter: 2005Q4

REPORT INFORMATION
  Report Type: 
  Country: None (occurrence: None)
  Receive Date: 20051213
  Receipt Date: 20051130
  Transmission Date: 20060501
  Serious: Yes (Other)
  Sender: FDA-Public Use
  Company Number: 2005165068

PATIENT
  Age: 41 Year
  Sex: Male
  Weight: 108 kg

DRUGS (5)
  1. BENADRYL [Suspect]
     Indication: PREMEDICATION
     Dosage: 80 MG
     Dates: start: 20051128
  2. PREDNISONE [Suspect]
     Indication: PREMEDICATION
     Dates: start: 20051128
  3. DEMEROL [Suspect]
     Indication: PREMEDICATION
     Dosage: 12.5 MG, INTRAVENOUS
     Route: 042
     Dates: start: 20051128
  4. ACETAMINOPHEN [Suspect]
     Indication: PREMEDICATION
     Dates: start: 20051128
  5. ATGAM (ANTIHYMOCYTE IMMUNOGLOBULIN0 [Concomitant]

REACTIONS (3)
  - DIZZINESS [None]
  - FEELING ABNORMAL [None]
  - NAUSEA [None]
